FAERS Safety Report 7492423-1 (Version None)
Quarter: 2011Q2

REPORT INFORMATION
  Report Type: 
  Country: None (occurrence: None)
  Receive Date: 20110519
  Receipt Date: 20110511
  Transmission Date: 20111010
  Serious: Yes (Hospitalization)
  Sender: FDA-Public Use
  Company Number: US-B.I. PHARMACEUTICALS,INC./RIDGEFIELD-2011-BP-12850BP

PATIENT
  Age: 60 Year
  Sex: Male

DRUGS (12)
  1. PRADAXA [Suspect]
     Indication: ATRIAL FIBRILLATION
     Dosage: 300 MG
     Route: 048
     Dates: start: 20110117, end: 20110507
  2. IMITREX [Concomitant]
     Dosage: 20 MG
     Route: 048
  3. ULTRAM [Concomitant]
     Dosage: 50 MG
     Route: 048
  4. LISINOPRIL [Concomitant]
     Indication: CARDIAC FAILURE CONGESTIVE
     Dosage: 5 MG
     Route: 048
  5. COREG [Concomitant]
     Indication: CORONARY ARTERY DISEASE
     Dosage: 12.5 MG
     Route: 048
  6. LOPID [Concomitant]
     Dosage: 1200 MG
     Route: 048
  7. ALLOPURINOL [Concomitant]
     Indication: RENAL FAILURE CHRONIC
     Dosage: 100 MG
     Route: 048
  8. NEXIUM [Concomitant]
     Dosage: 40 MG
     Route: 048
  9. XANAX [Concomitant]
     Dosage: 1 MG
     Route: 048
  10. LASIX [Concomitant]
     Indication: CARDIAC FAILURE CONGESTIVE
     Dosage: 40 MG
     Route: 048
  11. ZANTAC [Concomitant]
     Dosage: 300 MG
     Route: 048
  12. NEURONTIN [Concomitant]
     Dosage: 2400 MG
     Route: 048

REACTIONS (2)
  - EMBOLISM [None]
  - SPLENIC INFARCTION [None]
